FAERS Safety Report 16441794 (Version 2)
Quarter: 2019Q2

REPORT INFORMATION
  Report Type: Report from Study
  Country: None (occurrence: US)
  Receive Date: 20190617
  Receipt Date: 20190618
  Transmission Date: 20190711
  Serious: No
  Sender: FDA-Public Use
  Company Number: US-US WORLDMEDS, LLC-USW201807-001065

PATIENT
  Age: 60 Year
  Sex: Female
  Weight: 77.56 kg

DRUGS (12)
  1. ERGOCALCIFEROL (D2) [Concomitant]
  2. ENTACAPONE. [Concomitant]
     Active Substance: ENTACAPONE
  3. CARBIDOPA/LEVODOPA [Concomitant]
     Active Substance: CARBIDOPA\LEVODOPA
  4. COMBIGAN [Concomitant]
     Active Substance: BRIMONIDINE TARTRATE\TIMOLOL MALEATE
  5. APOKYN [Suspect]
     Active Substance: APOMORPHINE HYDROCHLORIDE
     Indication: PARKINSON^S DISEASE
     Route: 058
     Dates: start: 20180709
  6. OXYBUTYNIN ER [Concomitant]
     Active Substance: OXYBUTYNIN
  7. AZOPT [Concomitant]
     Active Substance: BRINZOLAMIDE
  8. ESTRADIOL. [Concomitant]
     Active Substance: ESTRADIOL
     Route: 062
  9. PROGESTERONE. [Concomitant]
     Active Substance: PROGESTERONE
  10. AMANTADINE. [Concomitant]
     Active Substance: AMANTADINE HYDROCHLORIDE
  11. PLAQUENIL [Concomitant]
     Active Substance: HYDROXYCHLOROQUINE SULFATE
  12. LUMIGAN [Concomitant]
     Active Substance: BIMATOPROST

REACTIONS (6)
  - Nausea [Recovered/Resolved]
  - Injection site pruritus [Recovered/Resolved]
  - Dizziness [Recovered/Resolved]
  - Injection site erythema [Recovered/Resolved]
  - Somnolence [Unknown]
  - Vomiting [Recovered/Resolved]

NARRATIVE: CASE EVENT DATE: 20180709
